FAERS Safety Report 12852364 (Version 1)
Quarter: 2016Q4

REPORT INFORMATION
  Report Type: Spontaneous
  Country: US (occurrence: US)
  Receive Date: 20161015
  Receipt Date: 20161015
  Transmission Date: 20170207
  Serious: Yes (Disabling)
  Sender: FDA-Public Use
  Company Number: None

PATIENT
  Age: 3 Month
  Sex: Female
  Weight: 5.4 kg

DRUGS (2)
  1. BABY TEETHING (HYLAND HOMEOPATHIC) [Suspect]
     Active Substance: HOMEOPATHICS
     Indication: TEETHING
     Dosage: ?          QUANTITY:2 TABLET(S);?
     Route: 060
     Dates: start: 20160929, end: 20161004
  2. TYLENOL [Concomitant]
     Active Substance: ACETAMINOPHEN

REACTIONS (10)
  - Depressed mood [None]
  - Mouth swelling [None]
  - Screaming [None]
  - Drug ineffective [None]
  - Agitation [None]
  - Oral mucosal erythema [None]
  - Mouth injury [None]
  - Oral pain [None]
  - Crying [None]
  - Hypophagia [None]

NARRATIVE: CASE EVENT DATE: 20161004
